FAERS Safety Report 7897802-6 (Version None)
Quarter: 2011Q4

REPORT INFORMATION
  Report Type: 
  Country: None (occurrence: None)
  Receive Date: 20111107
  Receipt Date: 20111103
  Transmission Date: 20120403
  Serious: Yes (Hospitalization)
  Sender: FDA-Public Use
  Company Number: AT-ROCHE-1009269

PATIENT
  Sex: Male

DRUGS (4)
  1. NOVALGIN [Concomitant]
     Route: 048
  2. KEPPRA [Concomitant]
  3. AVASTIN [Suspect]
     Indication: MALIGNANT GLIOMA
     Route: 042
     Dates: start: 20100423, end: 20100719
  4. FORTECORTIN [Concomitant]

REACTIONS (1)
  - NEPHROLITHIASIS [None]
